FAERS Safety Report 8251248-X (Version None)
Quarter: 2012Q2

REPORT INFORMATION
  Report Type: 
  Country: None (occurrence: None)
  Receive Date: 20120402
  Receipt Date: 20120326
  Transmission Date: 20120825
  Serious: Yes (Other)
  Sender: FDA-Public Use
  Company Number: US-PFIZER INC-2010157423

PATIENT
  Sex: Female
  Weight: 54.422 kg

DRUGS (9)
  1. ESTRADIOL [Suspect]
     Dosage: 0.5 MG, 1X/DAY
     Route: 048
     Dates: end: 20050101
  2. CLONIDINE [Concomitant]
     Dosage: UNK
  3. LOSARTAN [Concomitant]
     Dosage: UNK
  4. LEVOTHYROXINE [Concomitant]
     Dosage: UNK
  5. PREMARIN [Suspect]
     Indication: MENOPAUSAL SYMPTOMS
     Dosage: UNK
     Route: 048
     Dates: end: 20050101
  6. AMLODIPINE [Concomitant]
     Dosage: UNK
  7. PREMARIN [Suspect]
     Dosage: 0.3 MG, 1X/DAY
     Route: 048
     Dates: end: 20040101
  8. FUROSEMIDE [Concomitant]
     Dosage: UNK
  9. HALOPERIDOL [Concomitant]
     Dosage: UNK

REACTIONS (14)
  - VASCULAR SHUNT [None]
  - URINARY RETENTION [None]
  - NORMAL PRESSURE HYDROCEPHALUS [None]
  - DELIRIUM [None]
  - INCONTINENCE [None]
  - CONFUSIONAL STATE [None]
  - TEMPORAL ARTERITIS [None]
  - MENTAL DISORDER [None]
  - DEAFNESS [None]
  - DEMENTIA [None]
  - BRAIN INJURY [None]
  - GAIT DISTURBANCE [None]
  - HALLUCINATION, AUDITORY [None]
  - BALANCE DISORDER [None]
